FAERS Safety Report 9335603 (Version 1)
Quarter: 2013Q2

REPORT INFORMATION
  Report Type: Spontaneous
  Country: FR (occurrence: FR)
  Receive Date: 20130605
  Receipt Date: 20130605
  Transmission Date: 20140414
  Serious: Yes (Hospitalization)
  Sender: FDA-Public Use
  Company Number: FR-PFIZER INC-2013165208

PATIENT
  Age: 64 Year
  Sex: Female

DRUGS (10)
  1. AMLOR [Suspect]
     Indication: HYPERTENSION
     Dosage: 5 MG, 1X/DAY
     Route: 048
     Dates: start: 20130211, end: 20130306
  2. KARDEGIC [Concomitant]
  3. ATENOLOL [Concomitant]
  4. CRESTOR [Concomitant]
  5. METFORMIN [Concomitant]
  6. SERESTA [Concomitant]
  7. DEROXAT [Concomitant]
  8. OGAST [Concomitant]
  9. XANAX [Concomitant]
  10. PRADAXA [Concomitant]
     Dosage: UNK
     Dates: start: 201302

REACTIONS (2)
  - Headache [Recovered/Resolved]
  - Oedema peripheral [Recovered/Resolved]
